FAERS Safety Report 14591092 (Version 3)
Quarter: 2018Q2

REPORT INFORMATION
  Report Type: Spontaneous
  Country: US (occurrence: US)
  Receive Date: 20180302
  Receipt Date: 20180510
  Transmission Date: 20180711
  Serious: No
  Sender: FDA-Public Use
  Company Number: US-BAYER-2018-041502

PATIENT
  Sex: Female
  Weight: 72.97 kg

DRUGS (8)
  1. FROVATRIPTAN SUCCINATE MONOHYDRATE [Concomitant]
     Dosage: 2.5 MG, UNK
  2. FISH OIL [Concomitant]
     Active Substance: FISH OIL
  3. VITAMIN C [Concomitant]
     Active Substance: ASCORBIC ACID
  4. VITAMIN D [Concomitant]
     Active Substance: CHOLECALCIFEROL
  5. MIRENA [Suspect]
     Active Substance: LEVONORGESTREL
     Indication: CONTRACEPTION
     Dosage: 20 MCG/24HR, CONT
     Route: 015
     Dates: start: 20180228, end: 20180228
  6. AMITRIPTYLINE HCL [Concomitant]
     Active Substance: AMITRIPTYLINE
     Dosage: 10 MG, UNK
  7. MIRENA [Suspect]
     Active Substance: LEVONORGESTREL
     Indication: CONTRACEPTION
  8. IRON [Concomitant]
     Active Substance: IRON

REACTIONS (5)
  - Device malfunction [None]
  - Complication of device insertion [None]
  - Uterine polyp [None]
  - Procedural dizziness [Recovered/Resolved]
  - Procedural pain [Recovered/Resolved]

NARRATIVE: CASE EVENT DATE: 20180228
